FAERS Safety Report 21594252 (Version 2)
Quarter: 2022Q4

REPORT INFORMATION
  Report Type: Report from Study
  Country: IE (occurrence: IE)
  Receive Date: 20221115
  Receipt Date: 20221213
  Transmission Date: 20230112
  Serious: Yes (Hospitalization, Other)
  Sender: FDA-Public Use
  Company Number: IE-AstraZeneca-2022A374972

PATIENT
  Age: 0 Year
  Sex: Male

DRUGS (3)
  1. SYNAGIS [Suspect]
     Active Substance: PALIVIZUMAB
     Indication: Heart disease congenital
     Dates: start: 20221010
  2. SYNAGIS [Suspect]
     Active Substance: PALIVIZUMAB
     Dates: start: 20221107
  3. SYNAGIS [Suspect]
     Active Substance: PALIVIZUMAB
     Dates: start: 20221205

REACTIONS (5)
  - Vomiting [Recovering/Resolving]
  - Cough [Unknown]
  - Bronchiolitis [Unknown]
  - Viral rash [Unknown]
  - Rash [Unknown]

NARRATIVE: CASE EVENT DATE: 20221104
